FAERS Safety Report 9850823 (Version 2)
Quarter: 2014Q2

REPORT INFORMATION
  Report Type: Spontaneous
  Country: FR (occurrence: FR)
  Receive Date: 20140128
  Receipt Date: 20140623
  Transmission Date: 20141212
  Serious: Yes (Hospitalization, Other)
  Sender: FDA-Public Use
  Company Number: FR-TEVA-459148USA

PATIENT
  Age: 72 Year
  Sex: Male

DRUGS (6)
  1. LEVACT [Suspect]
     Indication: CHRONIC LYMPHOCYTIC LEUKAEMIA
     Route: 041
     Dates: start: 20131211, end: 20131212
  2. MABTHERA [Suspect]
     Indication: CHRONIC LYMPHOCYTIC LEUKAEMIA
     Route: 042
     Dates: start: 20131211
  3. METFORMINE [Concomitant]
     Indication: DIABETES MELLITUS
     Route: 048
  4. DIAMICRON [Concomitant]
     Indication: DIABETES MELLITUS
     Dosage: UNK UNK, TWICE DAILY
     Route: 048
  5. ZELITREX [Concomitant]
     Indication: ANTIVIRAL PROPHYLAXIS
     Dosage: UNK UNK, UNKNOWN FREQ.
     Route: 048
  6. ZYLORIC [Concomitant]
     Indication: GOUT
     Dosage: UNK UNK, UNKNOWN FREQ.
     Route: 048

REACTIONS (2)
  - Angina pectoris [Recovered/Resolved]
  - Bronchitis [Recovered/Resolved]
